FAERS Safety Report 5620741-8 (Version None)
Quarter: 2008Q1

REPORT INFORMATION
  Report Type: 
  Country: None (occurrence: None)
  Receive Date: 20080208
  Receipt Date: 20080124
  Transmission Date: 20080703
  Serious: Yes (Hospitalization)
  Sender: FDA-Public Use
  Company Number: JP-ELI_LILLY_AND_COMPANY-JP200711006129

PATIENT
  Sex: Female
  Weight: 44 kg

DRUGS (1)
  1. GEMCITABINE HCL [Suspect]
     Indication: GALLBLADDER CANCER RECURRENT
     Dosage: 1000 MG/M2, OTHER
     Route: 042
     Dates: start: 20070720, end: 20070727

REACTIONS (2)
  - BLOOD BILIRUBIN INCREASED [None]
  - INTESTINAL ISCHAEMIA [None]
